FAERS Safety Report 25255407 (Version 1)
Quarter: 2025Q2

REPORT INFORMATION
  Report Type: Spontaneous
  Country: CA (occurrence: CA)
  Receive Date: 20250430
  Receipt Date: 20250430
  Transmission Date: 20250717
  Serious: Yes (Hospitalization)
  Sender: MYLAN
  Company Number: CA-MYLANLABS-2025M1020418

PATIENT
  Sex: Female

DRUGS (8)
  1. REVATIO [Suspect]
     Active Substance: SILDENAFIL CITRATE
     Indication: Atrioventricular septal defect
  2. REVATIO [Suspect]
     Active Substance: SILDENAFIL CITRATE
     Indication: Trisomy 21
  3. REVATIO [Suspect]
     Active Substance: SILDENAFIL CITRATE
     Indication: Heart disease congenital
     Route: 048
  4. REVATIO [Suspect]
     Active Substance: SILDENAFIL CITRATE
     Route: 048
  5. REVATIO [Suspect]
     Active Substance: SILDENAFIL CITRATE
     Dosage: 7.5 MILLIGRAM, TID (THREE TIMES A DAY)
     Dates: start: 20250312
  6. REVATIO [Suspect]
     Active Substance: SILDENAFIL CITRATE
     Dosage: 7.5 MILLIGRAM, TID (THREE TIMES A DAY)
     Dates: start: 20250312
  7. REVATIO [Suspect]
     Active Substance: SILDENAFIL CITRATE
     Dosage: 7.5 MILLIGRAM, TID (THREE TIMES A DAY)
     Route: 048
     Dates: start: 20250312
  8. REVATIO [Suspect]
     Active Substance: SILDENAFIL CITRATE
     Dosage: 7.5 MILLIGRAM, TID (THREE TIMES A DAY)
     Route: 048
     Dates: start: 20250312

REACTIONS (2)
  - Hospitalisation [Unknown]
  - Off label use [Unknown]
